FAERS Safety Report 13176994 (Version 1)
Quarter: 2017Q1

REPORT INFORMATION
  Report Type: Report from Study
  Country: US (occurrence: US)
  Receive Date: 20170201
  Receipt Date: 20170201
  Transmission Date: 20170428
  Serious: No
  Sender: FDA-Public Use
  Company Number: US-EXELIXIS-CABO-16006831

PATIENT
  Sex: Male

DRUGS (9)
  1. VALSARTAN. [Concomitant]
     Active Substance: VALSARTAN
  2. CABOMETYX [Suspect]
     Active Substance: CABOZANTINIB S-MALATE
     Indication: RENAL CANCER
     Dosage: 60 MG, MWF
     Route: 048
     Dates: start: 20160624
  3. ONDANSETRON [Concomitant]
     Active Substance: ONDANSETRON
  4. LANSOPRAZOLE. [Concomitant]
     Active Substance: LANSOPRAZOLE
  5. VITAMIN D3 [Concomitant]
     Active Substance: CHOLECALCIFEROL
  6. CARVEDILOL. [Concomitant]
     Active Substance: CARVEDILOL
  7. HYDROCODONE [Concomitant]
     Active Substance: HYDROCODONE
  8. IRON [Concomitant]
     Active Substance: IRON
  9. FENTANYL. [Concomitant]
     Active Substance: FENTANYL

REACTIONS (1)
  - Blister [Unknown]
